FAERS Safety Report 22251465 (Version 1)
Quarter: 2023Q2

REPORT INFORMATION
  Report Type: Spontaneous
  Country: US (occurrence: None)
  Receive Date: 20230424
  Receipt Date: 20230424
  Transmission Date: 20230722
  Serious: Yes (Death)
  Sender: FDA-Public Use
  Company Number: None

PATIENT
  Age: 62 Year
  Sex: Male

DRUGS (14)
  1. EVOTAZ [Suspect]
     Active Substance: ATAZANAVIR SULFATE\COBICISTAT
     Indication: HIV infection
     Dosage: OTHER QUANTITY : 300MG-150MG;?FREQUENCY : DAILY;?
     Route: 048
     Dates: start: 20200205, end: 20230416
  2. ABACAVIR AND LAMIVUDINE [Suspect]
     Active Substance: ABACAVIR SULFATE\LAMIVUDINE
     Indication: HIV infection
     Dosage: OTHER QUANTITY : 600-300MG;?FREQUENCY : DAILY;?
     Route: 048
     Dates: start: 20200311, end: 20230416
  3. ALBUTEROL [Concomitant]
     Active Substance: ALBUTEROL
  4. AMLODIPINE [Concomitant]
     Active Substance: AMLODIPINE BESYLATE
  5. ASPIRIN [Concomitant]
     Active Substance: ASPIRIN
  6. ATORVASTATIN [Concomitant]
     Active Substance: ATORVASTATIN
  7. AZTHROMYCIN [Concomitant]
  8. BENZONATATE [Concomitant]
     Active Substance: BENZONATATE
  9. CARVEDILOL [Concomitant]
     Active Substance: CARVEDILOL
  10. DICLOFENAC [Concomitant]
     Active Substance: DICLOFENAC
  11. DOCUSATE [Concomitant]
     Active Substance: DOCUSATE
  12. FAMOTIDINE [Concomitant]
     Active Substance: FAMOTIDINE
  13. CENTRUM SILVER ULTRA MENS TAB [Concomitant]
  14. FIBERCON [Concomitant]

REACTIONS (1)
  - Death [None]

NARRATIVE: CASE EVENT DATE: 20230416
